FAERS Safety Report 21273767 (Version 3)
Quarter: 2022Q3

REPORT INFORMATION
  Report Type: Spontaneous
  Country: US (occurrence: US)
  Receive Date: 20220831
  Receipt Date: 20220920
  Transmission Date: 20221026
  Serious: Yes (Other)
  Sender: FDA-Public Use
  Company Number: US-PFIZER INC-202201108059

PATIENT
  Age: 75 Year
  Sex: Female
  Weight: 68.95 kg

DRUGS (3)
  1. PAXLOVID [Suspect]
     Active Substance: NIRMATRELVIR\RITONAVIR
     Indication: COVID-19 treatment
     Dosage: 3 DF, 2X/DAY [2X 150 MG TABLET NIRMATRELVIR AND 1X 100 MG TABLET RITONAVIR BY MOUTH TWICE DAILY FOR
     Route: 048
     Dates: start: 20220518, end: 20220523
  2. ROSUVASTATIN [Concomitant]
     Active Substance: ROSUVASTATIN
     Indication: Blood cholesterol increased
     Dosage: 20 MG, 1X/DAY
  3. ZOLPIDEM [Concomitant]
     Active Substance: ZOLPIDEM TARTRATE
     Indication: Sleep disorder
     Dosage: HALF PILL 10MG

REACTIONS (6)
  - Impaired gastric emptying [Recovered/Resolved]
  - Constipation [Recovered/Resolved]
  - Productive cough [Recovered/Resolved]
  - Balance disorder [Recovered/Resolved]
  - Dry mouth [Recovered/Resolved]
  - Illness [Recovered/Resolved]

NARRATIVE: CASE EVENT DATE: 20220523
